FAERS Safety Report 5568423-5 (Version None)
Quarter: 2007Q4

REPORT INFORMATION
  Report Type: 
  Country: None (occurrence: None)
  Receive Date: 20071220
  Receipt Date: 20071214
  Transmission Date: 20080405
  Serious: Yes (Hospitalization)
  Sender: FDA-Public Use
  Company Number: GB-AVENTIS-200721465GDDC

PATIENT
  Age: 28 Year
  Sex: Female

DRUGS (2)
  1. DDAVP [Suspect]
  2. TRANEXAMIC ACID [Suspect]
     Route: 048

REACTIONS (1)
  - MYOCARDIAL INFARCTION [None]
